FAERS Safety Report 23763292 (Version 1)
Quarter: 2024Q2

REPORT INFORMATION
  Report Type: Spontaneous
  Country: IL (occurrence: IL)
  Receive Date: 20240419
  Receipt Date: 20240419
  Transmission Date: 20240716
  Serious: Yes (Life-Threatening)
  Sender: FDA-Public Use
  Company Number: IL-TEVA-VS-3185453

PATIENT
  Age: 48 Year
  Sex: Female

DRUGS (3)
  1. OXALIPLATIN [Suspect]
     Active Substance: OXALIPLATIN
     Indication: Product used for unknown indication
     Dosage: 190MG
     Route: 065
  2. AKYNZEO [Concomitant]
     Indication: Product used for unknown indication
     Route: 065
  3. Dexa [Concomitant]
     Indication: Product used for unknown indication
     Route: 065

REACTIONS (2)
  - Disturbance in attention [Unknown]
  - Oropharyngeal discomfort [Unknown]
